FAERS Safety Report 11515674 (Version 2)
Quarter: 2015Q3

REPORT INFORMATION
  Report Type: Spontaneous
  Country: FR (occurrence: FR)
  Receive Date: 20150916
  Receipt Date: 20150930
  Transmission Date: 20151125
  Serious: Yes (Hospitalization)
  Sender: FDA-Public Use
  Company Number: FR-PFIZER INC-2015302821

PATIENT
  Age: 96 Year
  Sex: Female

DRUGS (7)
  1. LAMALINE [Suspect]
     Active Substance: ACETAMINOPHEN\CAFFEINE\OPIUM
     Indication: OSTEOARTHRITIS
     Dosage: 2 DF, 3X/DAY
     Route: 048
     Dates: end: 20150105
  2. DIFFU K [Concomitant]
     Active Substance: POTASSIUM CHLORIDE
  3. ALDACTAZINE [Suspect]
     Active Substance: ALTHIAZIDE\SPIRONOLACTONE
     Indication: HYPERTENSION
     Dosage: 1 DF, 1X/DAY
     Route: 048
     Dates: end: 20150105
  4. STILNOX [Concomitant]
     Active Substance: ZOLPIDEM TARTRATE
  5. CALCIDOSE /07357001/ [Concomitant]
     Active Substance: CALCIUM CARBONATE
  6. ALPRAZOLAM. [Suspect]
     Active Substance: ALPRAZOLAM
     Indication: ANXIETY DISORDER
     Dosage: 0.25 MG, DAILY
     Route: 048
  7. LEXOMIL ROCHE [Suspect]
     Active Substance: BROMAZEPAM
     Indication: ANXIETY DISORDER
     Dosage: 0.25 DF, 3X/DAY
     Route: 048

REACTIONS (3)
  - Syncope [Unknown]
  - Fall [Recovered/Resolved]
  - Malaise [Unknown]

NARRATIVE: CASE EVENT DATE: 20150104
